FAERS Safety Report 6518667-0 (Version None)
Quarter: 2009Q4

REPORT INFORMATION
  Report Type: 
  Country: None (occurrence: None)
  Receive Date: 20091228
  Receipt Date: 20091214
  Transmission Date: 20100525
  Serious: No
  Sender: FDA-Public Use
  Company Number: US-JNJFOC-20091204526

PATIENT
  Sex: Male
  Weight: 120 kg

DRUGS (10)
  1. GOLIMUMAB [Suspect]
     Route: 058
  2. GOLIMUMAB [Suspect]
     Indication: ANKYLOSING SPONDYLITIS
     Route: 058
  3. LISINOPRIL [Concomitant]
  4. CARDIZEM [Concomitant]
  5. HYDROCHLOROTHIAZIDE [Concomitant]
  6. POTASSIUM [Concomitant]
  7. NASACORT [Concomitant]
  8. NEXIUM [Concomitant]
  9. TYLENOL (CAPLET) [Concomitant]
  10. COUMADIN [Concomitant]

REACTIONS (1)
  - BASAL CELL CARCINOMA [None]
